FAERS Safety Report 8513112-8 (Version None)
Quarter: 2012Q3

REPORT INFORMATION
  Report Type: 
  Country: None (occurrence: None)
  Receive Date: 20120716
  Receipt Date: 20120712
  Transmission Date: 20120928
  Serious: Yes (Death, Other)
  Sender: FDA-Public Use
  Company Number: US-ASTRAZENECA-2012SE48084

PATIENT
  Sex: Female

DRUGS (1)
  1. NEXIUM [Suspect]
     Route: 048

REACTIONS (5)
  - LUNG NEOPLASM MALIGNANT [None]
  - GASTRIC DISORDER [None]
  - SYSTEMIC LUPUS ERYTHEMATOSUS [None]
  - PNEUMONIA [None]
  - MALAISE [None]
